FAERS Safety Report 7378551-X (Version None)
Quarter: 2011Q1

REPORT INFORMATION
  Report Type: 
  Country: None (occurrence: None)
  Receive Date: 20110328
  Receipt Date: 20110315
  Transmission Date: 20110831
  Serious: Yes (Hospitalization)
  Sender: FDA-Public Use
  Company Number: LB-TYCO HEALTHCARE/MALLINCKRODT-T201100603

PATIENT
  Age: 63 Year
  Sex: Female

DRUGS (9)
  1. VALSARTAN [Concomitant]
  2. GEMFIBROZIL [Concomitant]
  3. CLONAZEPAM [Concomitant]
  4. VERAPAMIL [Concomitant]
  5. PENNSAID [Suspect]
     Indication: MIGRAINE
  6. PENNSAID [Suspect]
     Indication: BACK PAIN
     Dosage: TAKEN ALMOST DAILY FOR YEARS
  7. ATORVASTATIN CALCIUM [Concomitant]
  8. VENLAFAXINE [Concomitant]
  9. RABEPRAZOLE SODIUM [Concomitant]

REACTIONS (1)
  - GASTROINTESTINAL DISORDER [None]
